FAERS Safety Report 7228635-1 (Version None)
Quarter: 2011Q1

REPORT INFORMATION
  Report Type: 
  Country: None (occurrence: None)
  Receive Date: 20110117
  Receipt Date: 20110107
  Transmission Date: 20110831
  Serious: No
  Sender: FDA-Public Use
  Company Number: US-BIOGENIDEC-2011BI000977

PATIENT
  Age: 40 Year
  Sex: Female

DRUGS (2)
  1. TYSABRI [Suspect]
     Indication: MULTIPLE SCLEROSIS
     Route: 042
     Dates: start: 20080602
  2. BACLOFEN [Concomitant]
     Indication: MUSCLE SPASMS
     Dates: start: 19970101, end: 20090101

REACTIONS (4)
  - MULTIPLE SCLEROSIS [None]
  - ABASIA [None]
  - PERONEAL NERVE PALSY [None]
  - ASTHENIA [None]
